FAERS Safety Report 25494668 (Version 1)
Quarter: 2025Q2

REPORT INFORMATION
  Report Type: Report from Study
  Country: CA (occurrence: CA)
  Receive Date: 20250630
  Receipt Date: 20250630
  Transmission Date: 20250716
  Serious: Yes (Disabling)
  Sender: TAKEDA
  Company Number: CA-TAKEDA-2025TUS040838

PATIENT
  Sex: Female

DRUGS (5)
  1. VEDOLIZUMAB [Suspect]
     Active Substance: VEDOLIZUMAB
     Indication: Colitis ulcerative
  2. HYDROCORTISONE [Concomitant]
     Active Substance: HYDROCORTISONE
     Indication: Premedication
  3. DIPHENHYDRAMINE [Concomitant]
     Active Substance: DIPHENHYDRAMINE
     Indication: Premedication
  4. TYLENOL [Concomitant]
     Active Substance: ACETAMINOPHEN
  5. DILAUDID [Concomitant]
     Active Substance: HYDROMORPHONE HYDROCHLORIDE

REACTIONS (3)
  - Osteoporosis [Recovering/Resolving]
  - Paraesthesia [Recovering/Resolving]
  - Sciatica [Recovering/Resolving]
